FAERS Safety Report 5602097-X (Version None)
Quarter: 2008Q1

REPORT INFORMATION
  Report Type: 
  Country: None (occurrence: None)
  Receive Date: 20080125
  Receipt Date: 20080116
  Transmission Date: 20080703
  Serious: Yes (Life-Threatening)
  Sender: FDA-Public Use
  Company Number: JP-SANOFI-SYNTHELABO-A01200800584

PATIENT
  Age: 54 Year
  Sex: Female

DRUGS (4)
  1. ISOVORIN [Suspect]
     Indication: RECTAL CANCER METASTATIC
     Dosage: 100 MG
     Route: 041
     Dates: start: 20071128, end: 20071128
  2. FLUOROURACIL [Suspect]
     Indication: RECTAL CANCER METASTATIC
     Dosage: 500 MG
     Route: 040
     Dates: start: 20071129, end: 20071129
  3. AVASTIN [Suspect]
     Indication: RECTAL CANCER METASTATIC
     Route: 041
     Dates: start: 20071128, end: 20071128
  4. ELPLAT [Suspect]
     Indication: RECTAL CANCER METASTATIC
     Dosage: 100 MG
     Route: 041
     Dates: start: 20071128, end: 20071128

REACTIONS (3)
  - GASTROINTESTINAL PERFORATION [None]
  - PERITONITIS [None]
  - RECTAL PERFORATION [None]
